FAERS Safety Report 20382303 (Version 1)
Quarter: 2022Q1

REPORT INFORMATION
  Report Type: Spontaneous
  Country: US (occurrence: None)
  Receive Date: 20220127
  Receipt Date: 20220127
  Transmission Date: 20220423
  Serious: Yes (unspecified)
  Sender: FDA-Public Use
  Company Number: None

PATIENT
  Age: 65 Year
  Sex: Male
  Weight: 108 kg

DRUGS (1)
  1. OXALIPLATIN [Suspect]
     Active Substance: OXALIPLATIN
     Indication: Rectal adenocarcinoma
     Dosage: OTHER STRENGTH : 100MG/VIL;?FREQUENCY : ONCE;?
     Route: 042
     Dates: start: 20210119, end: 20210119

REACTIONS (7)
  - Diarrhoea [None]
  - Nausea [None]
  - Vomiting [None]
  - Hypotension [None]
  - Dyspnoea [None]
  - Flushing [None]
  - Pollakiuria [None]

NARRATIVE: CASE EVENT DATE: 20220119
